FAERS Safety Report 19498268 (Version 1)
Quarter: 2021Q3

REPORT INFORMATION
  Report Type: Spontaneous
  Country: FR (occurrence: FR)
  Receive Date: 20210706
  Receipt Date: 20210706
  Transmission Date: 20211014
  Serious: Yes (Disabling)
  Sender: FDA-Public Use
  Company Number: FR-PFIZER INC-2021759323

PATIENT
  Age: 18 Year
  Sex: Female

DRUGS (1)
  1. MINIDRIL [Suspect]
     Active Substance: ETHINYL ESTRADIOL\LEVONORGESTREL
     Indication: CONTRACEPTION
     Dosage: BLISTER PACK OF 21 DAYS THEN 7 DAYS OFF
     Route: 048
     Dates: start: 20160101, end: 20201215

REACTIONS (6)
  - Weight increased [Not Recovered/Not Resolved]
  - SARS-CoV-2 test positive [Unknown]
  - Dyspepsia [Not Recovered/Not Resolved]
  - Transaminases abnormal [Not Recovered/Not Resolved]
  - Vomiting [Not Recovered/Not Resolved]
  - Blood cholesterol increased [Not Recovered/Not Resolved]

NARRATIVE: CASE EVENT DATE: 20160202
